FAERS Safety Report 5144264-8 (Version None)
Quarter: 2006Q4

REPORT INFORMATION
  Report Type: 
  Country: None (occurrence: None)
  Receive Date: 20061102
  Receipt Date: 20061102
  Transmission Date: 20070319
  Serious: Yes (Congenital Anomaly)
  Sender: FDA-Public Use
  Company Number: None

PATIENT
  Age: 59 Year
  Sex: Male

DRUGS (1)
  1. HEP-LOCK [Suspect]
     Indication: ANTICOAGULANT THERAPY
     Dosage: 300 UNITS  BID   IV BOLUS
     Route: 040
     Dates: start: 20060905, end: 20060905

REACTIONS (1)
  - HEPARIN-INDUCED THROMBOCYTOPENIA [None]
